FAERS Safety Report 8240688-0 (Version None)
Quarter: 2012Q1

REPORT INFORMATION
  Report Type: 
  Country: None (occurrence: None)
  Receive Date: 20120328
  Receipt Date: 20120320
  Transmission Date: 20120608
  Serious: Yes (Hospitalization)
  Sender: FDA-Public Use
  Company Number: US-JNJFOC-20120310714

PATIENT
  Sex: Male

DRUGS (1)
  1. XARELTO [Suspect]
     Indication: THROMBOSIS PROPHYLAXIS
     Route: 048
     Dates: start: 20120208, end: 20120210

REACTIONS (3)
  - DRUG EFFECT DECREASED [None]
  - MYOCARDIAL INFARCTION [None]
  - INTRACARDIAC THROMBUS [None]
